FAERS Safety Report 7913490-4 (Version None)
Quarter: 2011Q4

REPORT INFORMATION
  Report Type: 
  Country: None (occurrence: None)
  Receive Date: 20111115
  Receipt Date: 20111104
  Transmission Date: 20120403
  Serious: Yes (Hospitalization)
  Sender: FDA-Public Use
  Company Number: DE-RANBAXY-2011RR-50244

PATIENT
  Age: 41 Year
  Sex: Male

DRUGS (8)
  1. LORAZEPAM [Suspect]
     Indication: PRODUCT USED FOR UNKNOWN INDICATION
     Dosage: 1 MG, TID
     Route: 048
     Dates: start: 20100601
  2. CEFUROXIME [Concomitant]
     Indication: BRONCHITIS
     Dosage: UNK
     Route: 048
     Dates: start: 20110208
  3. AKINETON [Suspect]
     Indication: PRODUCT USED FOR UNKNOWN INDICATION
     Dosage: 2 MG, 1/2-0-1/2
     Route: 048
     Dates: start: 20050401
  4. TAXILAN [Suspect]
     Indication: PRODUCT USED FOR UNKNOWN INDICATION
     Dosage: 100 MG, 1-0-2
     Route: 048
     Dates: start: 20100901
  5. CARBAMAZEPINE [Suspect]
     Indication: PRODUCT USED FOR UNKNOWN INDICATION
     Dosage: 200 MG, BID
     Route: 048
     Dates: start: 20090301
  6. LAMOTRIG-ISIS [Suspect]
     Indication: PRODUCT USED FOR UNKNOWN INDICATION
     Dosage: 100 MG, 1-0-2
     Route: 048
     Dates: start: 20100601
  7. RISPERIDONE [Suspect]
     Indication: PRODUCT USED FOR UNKNOWN INDICATION
     Dosage: 1 MG, 1-0-1
     Route: 048
     Dates: start: 20090301
  8. THIORIDAZINE NEURAXPHARM [Suspect]
     Indication: PRODUCT USED FOR UNKNOWN INDICATION
     Dosage: 100 MG, TID
     Route: 048
     Dates: start: 20071101

REACTIONS (4)
  - ACUTE HEPATIC FAILURE [None]
  - RENAL FAILURE ACUTE [None]
  - BRONCHITIS [None]
  - THROMBOCYTOPENIA [None]
